FAERS Safety Report 12645707 (Version 1)
Quarter: 2016Q3

REPORT INFORMATION
  Report Type: Spontaneous
  Country: None (occurrence: US)
  Receive Date: 20160811
  Receipt Date: 20160811
  Transmission Date: 20161109
  Serious: No
  Sender: FDA-Public Use
  Company Number: US-ENDO PHARMACEUTICALS INC.-2015-002206

PATIENT
  Age: 54 Year
  Sex: Female
  Weight: 106.24 kg

DRUGS (3)
  1. PREDNISONE TABLETS [Suspect]
     Active Substance: PREDNISONE
     Indication: FIBROMYALGIA
     Route: 065
  2. METHOTREXATE. [Suspect]
     Active Substance: METHOTREXATE
     Indication: RHEUMATOID ARTHRITIS
     Route: 058
  3. PREDNISONE TABLETS [Suspect]
     Active Substance: PREDNISONE
     Indication: OSTEOARTHRITIS

REACTIONS (3)
  - Musculoskeletal discomfort [Not Recovered/Not Resolved]
  - Arthralgia [Not Recovered/Not Resolved]
  - Product use issue [Not Recovered/Not Resolved]
